FAERS Safety Report 6099436-5 (Version None)
Quarter: 2009Q1

REPORT INFORMATION
  Report Type: 
  Country: None (occurrence: None)
  Receive Date: 20090226
  Receipt Date: 20090218
  Transmission Date: 20090719
  Serious: Yes (Other)
  Sender: FDA-Public Use
  Company Number: 041561

PATIENT
  Sex: Female
  Weight: 91.6 kg

DRUGS (3)
  1. METHYLPREDNISOLONE [Suspect]
     Indication: ASTHMA
     Dosage: DOSE PACK, PRN, ORAL
     Route: 048
     Dates: start: 20050101, end: 20081001
  2. PREDNISONE TAB [Suspect]
     Indication: ASTHMA
     Dosage: AS DIRECTED, ORAL
     Route: 048
     Dates: start: 19810101, end: 20050101
  3. PROVENTIL [Concomitant]

REACTIONS (5)
  - CUSHINGOID [None]
  - FLUID RETENTION [None]
  - MOOD SWINGS [None]
  - OEDEMA PERIPHERAL [None]
  - TYPE 2 DIABETES MELLITUS [None]
